FAERS Safety Report 5080460-6 (Version None)
Quarter: 2006Q3

REPORT INFORMATION
  Report Type: 
  Country: None (occurrence: None)
  Receive Date: 20060809
  Receipt Date: 20060725
  Transmission Date: 20061208
  Serious: Yes (Death)
  Sender: FDA-Public Use
  Company Number: 200613212GDS

PATIENT
  Age: 24 Month
  Sex: Female

DRUGS (5)
  1. DACARBAZINE [Suspect]
     Indication: GANGLIONEUROBLASTOMA
  2. VINCRISTINE [Suspect]
     Indication: GANGLIONEUROBLASTOMA
  3. CISPLATIN [Suspect]
     Indication: GANGLIONEUROBLASTOMA
  4. ADRIAMYCIN PFS [Suspect]
     Indication: GANGLIONEUROBLASTOMA
  5. ETOPOSIDE [Suspect]
     Indication: GANGLIONEUROBLASTOMA

REACTIONS (2)
  - ACUTE LYMPHOCYTIC LEUKAEMIA [None]
  - TREATMENT RELATED SECONDARY MALIGNANCY [None]
